FAERS Safety Report 17980059 (Version 1)
Quarter: 2020Q3

REPORT INFORMATION
  Report Type: Spontaneous
  Country: FR (occurrence: FR)
  Receive Date: 20200703
  Receipt Date: 20200703
  Transmission Date: 20201103
  Serious: Yes (Other)
  Sender: FDA-Public Use
  Company Number: FR-MYLANLABS-2020M1059868

PATIENT
  Age: 84 Year
  Sex: Male
  Weight: 62 kg

DRUGS (3)
  1. ACICLOVIR [Suspect]
     Active Substance: ACYCLOVIR
     Indication: MENINGITIS
     Dosage: 600 MILLIGRAM, Q8H
     Route: 041
     Dates: start: 20200518, end: 20200519
  2. CEFTRIAXONE. [Suspect]
     Active Substance: CEFTRIAXONE
     Indication: COVID-19 PNEUMONIA
     Dosage: 6 G /24 H PUIS 1 G/24H
     Route: 041
     Dates: start: 20200518, end: 20200523
  3. AMOXICILLINE PANPHARMA [Suspect]
     Active Substance: AMOXICILLIN
     Indication: MENINGITIS
     Dosage: 12 GRAM, QD
     Route: 041
     Dates: start: 20200518, end: 20200519

REACTIONS (2)
  - Off label use [Unknown]
  - Acute kidney injury [Recovered/Resolved]

NARRATIVE: CASE EVENT DATE: 20200519
